FAERS Safety Report 11568335 (Version 2)
Quarter: 2015Q4

REPORT INFORMATION
  Report Type: Spontaneous
  Country: US (occurrence: US)
  Receive Date: 20150929
  Receipt Date: 20151102
  Transmission Date: 20160304
  Serious: Yes (Other)
  Sender: FDA-Public Use
  Company Number: US-ROCHE-1639650

PATIENT
  Age: 66 Year
  Sex: Female
  Weight: 88.53 kg

DRUGS (1)
  1. ESBRIET [Suspect]
     Active Substance: PIRFENIDONE
     Indication: IDIOPATHIC PULMONARY FIBROSIS
     Dosage: 3 CAPSULES
     Route: 048
     Dates: start: 20150728

REACTIONS (4)
  - Foot fracture [Unknown]
  - Fall [Unknown]
  - Nausea [Unknown]
  - Fibula fracture [Unknown]

NARRATIVE: CASE EVENT DATE: 20150918
